FAERS Safety Report 6287772-9 (Version None)
Quarter: 2009Q3

REPORT INFORMATION
  Report Type: 
  Country: None (occurrence: None)
  Receive Date: 20090727
  Receipt Date: 20090727
  Transmission Date: 20100115
  Serious: Yes (Hospitalization)
  Sender: FDA-Public Use
  Company Number: None

PATIENT
  Sex: Female
  Weight: 59.1 kg

DRUGS (3)
  1. ZOLOFT [Suspect]
     Indication: ANXIETY
     Dosage: 25MG ONCE A DAY AT NIGHT
     Dates: start: 20090320, end: 20090403
  2. ZOLOFT [Suspect]
     Indication: PANIC ATTACK
     Dosage: 25MG ONCE A DAY AT NIGHT
     Dates: start: 20090320, end: 20090403
  3. CELEXA [Suspect]
     Dosage: 20MG ONCE A DAY AT NIGHT

REACTIONS (12)
  - CONDITION AGGRAVATED [None]
  - CONFUSIONAL STATE [None]
  - CRYING [None]
  - HYPERTENSION [None]
  - IMPAIRED DRIVING ABILITY [None]
  - IMPAIRED WORK ABILITY [None]
  - MENTAL DISORDER [None]
  - MUSCLE SPASMS [None]
  - MUSCLE TWITCHING [None]
  - MYDRIASIS [None]
  - SEROTONIN SYNDROME [None]
  - TREMOR [None]
